FAERS Safety Report 6666294-7 (Version None)
Quarter: 2010Q2

REPORT INFORMATION
  Report Type: 
  Country: None (occurrence: None)
  Receive Date: 20100402
  Receipt Date: 20100323
  Transmission Date: 20101027
  Serious: Yes (Other)
  Sender: FDA-Public Use
  Company Number: US-ABBOTT-10P-163-0634414-03

PATIENT
  Sex: Male
  Weight: 87 kg

DRUGS (11)
  1. HUMIRA [Suspect]
     Indication: RHEUMATOID ARTHRITIS
     Route: 058
     Dates: start: 20010727, end: 20100312
  2. METHOTREXATE [Concomitant]
     Indication: RHEUMATOID ARTHRITIS
     Dates: start: 19970227
  3. ALBUTEROL [Concomitant]
     Indication: ASTHMA
     Dates: start: 19980101
  4. FOLIC ACID [Concomitant]
     Indication: RHEUMATOID ARTHRITIS
     Dates: start: 20000629
  5. ETODOLAC [Concomitant]
     Indication: RHEUMATOID ARTHRITIS
     Dates: start: 20010511
  6. PANTOPRAZOLE SODIUM [Concomitant]
     Indication: GASTROOESOPHAGEAL REFLUX DISEASE
     Dates: start: 20040726
  7. TAMSULOSIN HCL [Concomitant]
     Indication: DYSURIA
     Dates: start: 20060117
  8. TAMSULOSIN HCL [Concomitant]
     Indication: PROPHYLAXIS
  9. TYLENOL (CAPLET) [Concomitant]
     Indication: RHEUMATOID ARTHRITIS
     Dates: start: 20080601
  10. ACTONEL [Concomitant]
     Indication: OSTEOPOROSIS PROPHYLAXIS
     Dates: start: 20090213
  11. AMLODIPINE [Concomitant]
     Indication: HYPERTENSION
     Dates: start: 20090316

REACTIONS (1)
  - OESOPHAGEAL ADENOCARCINOMA [None]
